FAERS Safety Report 19767741 (Version 1)
Quarter: 2021Q3

REPORT INFORMATION
  Report Type: Spontaneous
  Country: US (occurrence: US)
  Receive Date: 20210826
  Receipt Date: 20210826
  Transmission Date: 20211014
  Serious: No
  Sender: FDA-Public Use
  Company Number: None

PATIENT

DRUGS (2)
  1. CARBOPLATIN. [Suspect]
     Active Substance: CARBOPLATIN
     Route: 042
  2. FLUOROURACIL. [Suspect]
     Active Substance: FLUOROURACIL
     Dosage: ?          OTHER STRENGTH:5/100 GM/ML;?
     Route: 042

REACTIONS (4)
  - Packaging design issue [None]
  - Product label confusion [None]
  - Physical product label issue [None]
  - Product packaging confusion [None]
